FAERS Safety Report 9770386 (Version 1)
Quarter: 2013Q4

REPORT INFORMATION
  Report Type: Spontaneous
  Country: US (occurrence: US)
  Receive Date: 20131218
  Receipt Date: 20131218
  Transmission Date: 20140711
  Serious: Yes (Other)
  Sender: FDA-Public Use
  Company Number: US-SA-2013SA129969

PATIENT
  Age: 54 Year
  Sex: Male

DRUGS (1)
  1. FABRAZYME [Suspect]
     Indication: FABRY^S DISEASE
     Route: 042
     Dates: start: 2013

REACTIONS (3)
  - Convulsion [Recovered/Resolved]
  - Tremor [Recovered/Resolved]
  - Feeling cold [Recovered/Resolved]
